FAERS Safety Report 6577036-8 (Version None)
Quarter: 2010Q1

REPORT INFORMATION
  Report Type: 
  Country: None (occurrence: None)
  Receive Date: 20100210
  Receipt Date: 20100127
  Transmission Date: 20100710
  Serious: Yes (Hospitalization, Other)
  Sender: FDA-Public Use
  Company Number: DE-MYLANLABS-2009S1009828

PATIENT
  Age: 72 Year
  Sex: Female
  Weight: 77 kg

DRUGS (12)
  1. FENTANYL-100 [Suspect]
     Indication: PAIN
     Dosage: WECHSEL ALLE 3 TAGE
     Route: 062
     Dates: start: 20070101
  2. AMLODIPINE [Suspect]
     Indication: HYPERTENSION
     Route: 048
     Dates: start: 20080501
  3. DIOVAN HCT [Suspect]
     Indication: HYPERTENSION
     Route: 048
  4. MICTONORM [Suspect]
     Indication: MICTURITION URGENCY
  5. DIOVAN HCT [Concomitant]
     Dosage: 12,5 MG HYDROCHLOROTHIAZIDE/ 320 MG VALSARTAN
     Route: 048
  6. GODAMED /00002701/ [Concomitant]
     Indication: CAROTID ARTERY STENOSIS
     Route: 048
  7. PANTOZOL [Concomitant]
     Indication: GASTRITIS PROPHYLAXIS
     Route: 048
  8. PRESOMEN /00073001/ [Concomitant]
     Indication: OSTEOPOROSIS
     Route: 048
  9. ALENDRONSAEURE ABZ [Concomitant]
     Indication: OSTEOPOROSIS
     Route: 048
     Dates: start: 20080901
  10. VIANI [Concomitant]
     Indication: ASTHMA
     Dosage: FLUTICASONE PROPIONATE/SALMETEROL XINAFOATE
  11. CALCIMAGON-D3 [Concomitant]
     Indication: OSTEOPOROSIS
     Dosage: COLECALCIFEROL/CALCIUM CARBONATE
     Route: 048
     Dates: start: 20080901
  12. MICTONORM [Concomitant]
     Route: 048

REACTIONS (1)
  - FAECALOMA [None]
